FAERS Safety Report 17590168 (Version 1)
Quarter: 2020Q1

REPORT INFORMATION
  Report Type: Spontaneous
  Country: US (occurrence: US)
  Receive Date: 20200324
  Receipt Date: 20200324
  Transmission Date: 20200409
  Serious: No
  Sender: FDA-Public Use
  Company Number: None

PATIENT
  Sex: Female

DRUGS (2)
  1. KISQALI [Suspect]
     Active Substance: RIBOCICLIB
     Indication: HOT FLUSH
     Dosage: ?          OTHER DOSE:3 TABS QD;?
     Route: 048
  2. KISQALI [Suspect]
     Active Substance: RIBOCICLIB
     Indication: FATIGUE
     Dosage: ?          OTHER DOSE:3 TABS QD;?
     Route: 048

REACTIONS (4)
  - Therapy cessation [None]
  - Insurance issue [None]
  - Fatigue [None]
  - Hot flush [None]
